FAERS Safety Report 21989732 (Version 4)
Quarter: 2023Q2

REPORT INFORMATION
  Report Type: Spontaneous
  Country: CA (occurrence: CA)
  Receive Date: 20230214
  Receipt Date: 20230410
  Transmission Date: 20230722
  Serious: No
  Sender: FDA-Public Use
  Company Number: CA-PFIZER INC-202300056835

PATIENT
  Age: 26 Year
  Sex: Female
  Weight: 104 kg

DRUGS (2)
  1. ABRILADA [Suspect]
     Active Substance: ADALIMUMAB-AFZB
     Indication: Hidradenitis
     Dosage: 160 MG AT WEEK 0, 80MG AT WEEK 2, THEN 40MG EVERY WEEK
     Route: 058
     Dates: start: 20220811
  2. ABRILADA [Suspect]
     Active Substance: ADALIMUMAB-AFZB
     Dosage: UNK

REACTIONS (2)
  - Injection site pain [Not Recovered/Not Resolved]
  - Injection site discomfort [Unknown]
